FAERS Safety Report 20020381 (Version 1)
Quarter: 2021Q4

REPORT INFORMATION
  Report Type: Spontaneous
  Country: BI (occurrence: US)
  Receive Date: 20211101
  Receipt Date: 20211101
  Transmission Date: 20220303
  Serious: Yes (Hospitalization)
  Sender: FDA-Public Use
  Company Number: BI-BoehringerIngelheim-2021-BI-135422

PATIENT
  Age: 924 Month
  Sex: Female

DRUGS (1)
  1. SPIRIVA [Suspect]
     Active Substance: TIOTROPIUM BROMIDE MONOHYDRATE
     Indication: Respiratory disorder
     Dosage: DAY
     Route: 055
     Dates: start: 20201215, end: 20210115

REACTIONS (1)
  - Pneumonia [Recovered/Resolved]
